FAERS Safety Report 5571030-1 (Version None)
Quarter: 2007Q4

REPORT INFORMATION
  Report Type: 
  Country: None (occurrence: None)
  Receive Date: 20071221
  Receipt Date: 20071214
  Transmission Date: 20080405
  Serious: Yes (Hospitalization)
  Sender: FDA-Public Use
  Company Number: FR-AMGEN-UK253748

PATIENT
  Sex: Male

DRUGS (10)
  1. PANITUMUMAB [Suspect]
     Indication: COLORECTAL CANCER
     Route: 042
     Dates: start: 20071112
  2. PANITUMUMAB - PRIOR TO STUDY DRUG ADMINISTRATION [Suspect]
  3. LEUCOVORIN [Suspect]
  4. FLUOROURACIL [Suspect]
  5. IRINOTECAN HCL [Suspect]
  6. MOPRAL [Suspect]
     Route: 048
  7. KARDEGIC [Concomitant]
     Route: 048
     Dates: end: 20071112
  8. DUPHALAC [Concomitant]
     Route: 054
  9. SOLUPRED [Concomitant]
     Route: 048
     Dates: start: 20071115, end: 20071119
  10. PRIMPERAN INJ [Concomitant]
     Route: 048
     Dates: start: 20071115, end: 20071119

REACTIONS (4)
  - APLASIA [None]
  - COLORECTAL CANCER RECURRENT [None]
  - GENERAL PHYSICAL HEALTH DETERIORATION [None]
  - SUBILEUS [None]
